FAERS Safety Report 7002762-6 (Version None)
Quarter: 2010Q3

REPORT INFORMATION
  Report Type: 
  Country: None (occurrence: None)
  Receive Date: 20100920
  Receipt Date: 20100910
  Transmission Date: 20110219
  Serious: Yes (Death)
  Sender: FDA-Public Use
  Company Number: FI-BAYER-201039680GPV

PATIENT
  Age: 31 Year
  Sex: Female

DRUGS (12)
  1. YASMIN [Suspect]
     Indication: CONTRACEPTION
     Route: 048
  2. ATARAX [Concomitant]
     Route: 048
  3. SYMBICORT [Concomitant]
     Route: 055
  4. STELLA [Concomitant]
     Route: 048
  5. LAMICTAL [Concomitant]
  6. OMEPRAZOLE [Concomitant]
     Route: 048
  7. NORFLEX [Concomitant]
     Route: 048
  8. SIRDALUD [Concomitant]
     Route: 048
  9. OPAMOX [Concomitant]
     Route: 048
  10. PANACOD [Concomitant]
     Route: 048
  11. PRONAXEN [Concomitant]
     Route: 048
  12. PANADOL EXTEND [Concomitant]
     Route: 048

REACTIONS (2)
  - PULMONARY EMBOLISM [None]
  - VENOUS THROMBOSIS LIMB [None]
